FAERS Safety Report 6753769-5 (Version None)
Quarter: 2010Q2

REPORT INFORMATION
  Report Type: 
  Country: None (occurrence: None)
  Receive Date: 20100601
  Receipt Date: 20100520
  Transmission Date: 20101027
  Serious: Yes (Death, Hospitalization)
  Sender: FDA-Public Use
  Company Number: 2009AC000523

PATIENT
  Age: 73 Year
  Sex: Female

DRUGS (74)
  1. DIGOXIN [Suspect]
     Dosage: 0.25 MG; QD; PO
     Route: 048
     Dates: start: 20070403
  2. DIGOXIN [Suspect]
     Dosage: 0.25 MG; QD; PO
     Route: 048
     Dates: start: 20041201
  3. DIGOXIN [Suspect]
     Dosage: 025 MG; QD; PO
     Route: 048
     Dates: start: 19920801
  4. GLYBURIDE [Concomitant]
  5. SYNTHROID [Concomitant]
  6. HUMULIN N [Concomitant]
  7. FELDENE [Concomitant]
  8. RELAFEN [Concomitant]
  9. NORTRIPTYLINE HCL [Concomitant]
  10. LORTAB [Concomitant]
  11. METHYLDOPA [Concomitant]
  12. LASIX [Concomitant]
  13. PAMELOR [Concomitant]
  14. FENTANYL [Concomitant]
  15. BUSPAR [Concomitant]
  16. ZYPREXA [Concomitant]
  17. ACTOS [Concomitant]
  18. SEROQUEL [Concomitant]
  19. BUMEX [Concomitant]
  20. PROTONIX [Concomitant]
  21. COREG [Concomitant]
  22. DUONEB [Concomitant]
  23. VANCOMYCIN [Concomitant]
  24. MAXIPIME [Concomitant]
  25. PHENERGAN [Concomitant]
  26. LEVAQUIN [Concomitant]
  27. PROCRIT [Concomitant]
  28. LOVENOX [Concomitant]
  29. NOVOLIN [Concomitant]
  30. (DECAMET.DITHIO) (MET.PYRIDIN.) DITOSILATE [Concomitant]
  31. ACETAMINOPHEN [Concomitant]
  32. KLONOPIN [Concomitant]
  33. XANAX [Concomitant]
  34. RELAFEN [Concomitant]
  35. LOPERAMIDE [Concomitant]
  36. AMITRIPTYLINE [Concomitant]
  37. PAXIL [Concomitant]
  38. LOTENSIN [Concomitant]
  39. SYNTHROID [Concomitant]
  40. METHYLDOPA [Concomitant]
  41. CENTRUM SILVER VITAMINS [Concomitant]
  42. ASPIRIN [Concomitant]
  43. HUMULIN INSULIN [Concomitant]
  44. ACTOS [Concomitant]
  45. ALBUTEROL [Concomitant]
  46. ALPRAZOLAM [Concomitant]
  47. CARVEDILOL [Concomitant]
  48. DIPHENHYDRAMINE HYDROCHLORIDE [Concomitant]
  49. LEXAPRO [Concomitant]
  50. FENTANYL [Concomitant]
  51. GUAIFENESIN [Concomitant]
  52. HYDROXYZINE [Concomitant]
  53. LEVOFLOXACIN [Concomitant]
  54. LEOVTHRYROXINE [Concomitant]
  55. LORTAB [Concomitant]
  56. MULTI-VITAMINS [Concomitant]
  57. NOVOLIN [Concomitant]
  58. NYSTATIN [Concomitant]
  59. QUETIAPINE [Concomitant]
  60. NITROGLYCERIN [Concomitant]
  61. NITOR-DUR [Concomitant]
  62. TOLECTIN [Concomitant]
  63. LIBRAX [Concomitant]
  64. ASCRIPTIN [Concomitant]
  65. SULFATRIM [Concomitant]
  66. DYMELOR [Concomitant]
  67. K-DUR [Concomitant]
  68. PEPCID [Concomitant]
  69. IMDIUM [Concomitant]
  70. GLYBURIDE [Concomitant]
  71. GLUCOPHAGH [Concomitant]
  72. DYMELOR [Concomitant]
  73. ALDOMET [Concomitant]
  74. PEPCID [Concomitant]

REACTIONS (99)
  - ANGINA PECTORIS [None]
  - ANXIETY [None]
  - APNOEA [None]
  - APPLICATION SITE RASH [None]
  - ARTHRITIS [None]
  - ARTHROPATHY [None]
  - ASTHENIA [None]
  - ATRIOVENTRICULAR BLOCK FIRST DEGREE [None]
  - BLINDNESS TRANSIENT [None]
  - BLISTER [None]
  - BREAST PAIN [None]
  - BRONCHIAL SECRETION RETENTION [None]
  - CARDIAC FAILURE CONGESTIVE [None]
  - CARDIAC FLUTTER [None]
  - CARDIOMEGALY [None]
  - COMMUNICATION DISORDER [None]
  - CONFUSIONAL STATE [None]
  - CONSTIPATION [None]
  - DEATH OF RELATIVE [None]
  - DECREASED APPETITE [None]
  - DEPENDENCE ON ENABLING MACHINE OR DEVICE [None]
  - DEPRESSION [None]
  - DERMATITIS [None]
  - DIABETES MELLITUS INADEQUATE CONTROL [None]
  - DIZZINESS [None]
  - DYSGEUSIA [None]
  - DYSPEPSIA [None]
  - DYSPNOEA EXERTIONAL [None]
  - DYSURIA [None]
  - ECONOMIC PROBLEM [None]
  - ELECTROMECHANICAL DISSOCIATION [None]
  - EMOTIONAL DISTRESS [None]
  - ENDOCARDITIS BACTERIAL [None]
  - ERYTHEMA [None]
  - EXTRASYSTOLES [None]
  - GASTROOESOPHAGEAL REFLUX DISEASE [None]
  - GINGIVITIS [None]
  - HAEMODIALYSIS [None]
  - HALLUCINATION [None]
  - HEADACHE [None]
  - HEART RATE INCREASED [None]
  - HEMIPARESIS [None]
  - HYPERHIDROSIS [None]
  - HYPERKALAEMIA [None]
  - HYPERTENSION [None]
  - HYPOTHERMIA [None]
  - INCONTINENCE [None]
  - INSOMNIA [None]
  - IRRITABLE BOWEL SYNDROME [None]
  - LETHARGY [None]
  - LOOSE TOOTH [None]
  - LOSS OF CONSCIOUSNESS [None]
  - MACULAR OEDEMA [None]
  - MALAISE [None]
  - MENTAL STATUS CHANGES [None]
  - MONOPLEGIA [None]
  - MOUTH BREATHING [None]
  - MULTIPLE INJURIES [None]
  - MUSCULOSKELETAL PAIN [None]
  - MYOCARDIAL INFARCTION [None]
  - NECK PAIN [None]
  - NERVOUSNESS [None]
  - ORAL CANDIDIASIS [None]
  - OTITIS MEDIA [None]
  - PAIN [None]
  - PAIN IN EXTREMITY [None]
  - PAIN IN JAW [None]
  - PALPITATIONS [None]
  - PANIC ATTACK [None]
  - PERICARDIAL EFFUSION [None]
  - PLEURAL EFFUSION [None]
  - PNEUMONIA [None]
  - PROCTALGIA [None]
  - PULSE PRESSURE DECREASED [None]
  - PURPURA [None]
  - REFUSAL OF TREATMENT BY PATIENT [None]
  - RENAL FAILURE [None]
  - RESPIRATORY ACIDOSIS [None]
  - RESPIRATORY FAILURE [None]
  - RHINORRHOEA [None]
  - SENSORY LOSS [None]
  - SINUS BRADYCARDIA [None]
  - SOMNOLENCE [None]
  - STRESS [None]
  - SUFFOCATION FEELING [None]
  - SUICIDAL IDEATION [None]
  - TEARFULNESS [None]
  - TENDERNESS [None]
  - THERAPEUTIC AGENT TOXICITY [None]
  - TOOTHACHE [None]
  - TRACHEOSTOMY [None]
  - TREATMENT NONCOMPLIANCE [None]
  - UNEVALUABLE EVENT [None]
  - URINARY TRACT INFECTION [None]
  - URINE ANALYSIS ABNORMAL [None]
  - VERTIGO [None]
  - VISION BLURRED [None]
  - VISUAL IMPAIRMENT [None]
  - WEIGHT DECREASED [None]
